FAERS Safety Report 8141273-1 (Version None)
Quarter: 2012Q1

REPORT INFORMATION
  Report Type: 
  Country: None (occurrence: None)
  Receive Date: 20120216
  Receipt Date: 20120213
  Transmission Date: 20120608
  Serious: Yes (Other)
  Sender: FDA-Public Use
  Company Number: AU-ROCHE-1014849

PATIENT
  Sex: Male
  Weight: 97.3 kg

DRUGS (5)
  1. VEMURAFENIB [Suspect]
     Indication: METASTATIC MALIGNANT MELANOMA
     Dosage: RECENT DOSE ON 05/OCT/2011
     Route: 048
     Dates: start: 20100503
  2. OXAZEPAM [Concomitant]
     Dates: start: 20110526
  3. ACETAMINOPHEN W/ CODEINE [Concomitant]
     Dosage: TDD: 2 TABLETS
     Dates: start: 20110616
  4. DESVENLAFAXINE [Concomitant]
     Dates: start: 20110620
  5. GDC-0973 (MEK INHIBITOR) [Suspect]
     Indication: METASTATIC MALIGNANT MELANOMA
     Route: 048
     Dates: start: 20110630

REACTIONS (1)
  - TONSIL CANCER [None]
